FAERS Safety Report 8317561-2 (Version None)
Quarter: 2012Q2

REPORT INFORMATION
  Report Type: 
  Country: None (occurrence: None)
  Receive Date: 20120427
  Receipt Date: 20120423
  Transmission Date: 20120825
  Serious: Yes (Death)
  Sender: FDA-Public Use
  Company Number: PHHY2012US035693

PATIENT
  Age: 77 Year
  Sex: Male

DRUGS (3)
  1. CARBAMAZEPINE [Suspect]
  2. METHOCARBAMOL [Suspect]
  3. OXYCODONE HCL [Suspect]

REACTIONS (1)
  - COMPLETED SUICIDE [None]
